FAERS Safety Report 4263803-2 (Version None)
Quarter: 2004Q1

REPORT INFORMATION
  Report Type: 
  Country: None (occurrence: None)
  Receive Date: 20040102
  Receipt Date: 20031219
  Transmission Date: 20041129
  Serious: Yes (Death)
  Sender: FDA-Public Use
  Company Number: KII-2003-0003537

PATIENT
  Age: 75 Year
  Sex: Male

DRUGS (1)
  1. UNIPHYL [Suspect]
     Indication: DRUG USE FOR UNKNOWN INDICATION
     Dosage: 400 MG, DAILY

REACTIONS (2)
  - ASTHENIA [None]
  - CHRONIC OBSTRUCTIVE AIRWAYS DISEASE [None]
